FAERS Safety Report 8159757-9 (Version None)
Quarter: 2012Q1

REPORT INFORMATION
  Report Type: 
  Country: None (occurrence: None)
  Receive Date: 20120223
  Receipt Date: 20120220
  Transmission Date: 20120608
  Serious: Yes (Death, Hospitalization)
  Sender: FDA-Public Use
  Company Number: FR-B.I. PHARMACEUTICALS,INC./RIDGEFIELD-2011-FF-01157FF

PATIENT
  Sex: Male
  Weight: 70 kg

DRUGS (5)
  1. LASIX [Concomitant]
     Dosage: 40 MG
     Route: 048
  2. EFFEXOR [Concomitant]
     Dosage: 37.5 MG
     Route: 048
  3. DIGOXIN [Concomitant]
     Dosage: 0.25 MG
     Route: 048
  4. PRADAXA [Suspect]
     Indication: ATRIAL FIBRILLATION
     Dosage: 75 MG
     Route: 048
     Dates: start: 20111112, end: 20111204
  5. LASIX [Concomitant]
     Dosage: 20 MG
     Route: 048

REACTIONS (6)
  - ACUTE PULMONARY OEDEMA [None]
  - RENAL FAILURE [None]
  - HAEMATOMA [None]
  - INCORRECT DOSE ADMINISTERED [None]
  - CREATININE RENAL CLEARANCE DECREASED [None]
  - CARDIAC FAILURE [None]
